FAERS Safety Report 9799995 (Version 2)
Quarter: 2015Q3

REPORT INFORMATION
  Report Type: Spontaneous
  Country: US (occurrence: US)
  Receive Date: 20140106
  Receipt Date: 20150806
  Transmission Date: 20151125
  Serious: No
  Sender: FDA-Public Use
  Company Number: US-GILEAD-2010-0030830

PATIENT
  Age: 58 Year
  Sex: Female
  Weight: 95.25 kg

DRUGS (12)
  1. LETAIRIS [Suspect]
     Active Substance: AMBRISENTAN
     Indication: PULMONARY ARTERIAL HYPERTENSION
     Route: 048
     Dates: start: 20100215
  2. LANOXIN [Concomitant]
     Active Substance: DIGOXIN
  3. SPIRONOLACTONE. [Concomitant]
     Active Substance: SPIRONOLACTONE
  4. FUROSEMIDE. [Concomitant]
     Active Substance: FUROSEMIDE
  5. SYNTHROID [Concomitant]
     Active Substance: LEVOTHYROXINE SODIUM
  6. TYVASO [Concomitant]
     Active Substance: TREPROSTINIL
  7. NEXIUM [Concomitant]
     Active Substance: ESOMEPRAZOLE MAGNESIUM
  8. OXYGEN. [Concomitant]
     Active Substance: OXYGEN
  9. ALPHAGAN P [Concomitant]
     Active Substance: BRIMONIDINE TARTRATE
  10. REVATIO [Concomitant]
     Active Substance: SILDENAFIL CITRATE
  11. TYLENOL EX STR [Concomitant]
  12. BENZONATATE. [Concomitant]
     Active Substance: BENZONATATE

REACTIONS (1)
  - Mass [Unknown]
